FAERS Safety Report 5706797-2 (Version None)
Quarter: 2008Q2

REPORT INFORMATION
  Report Type: 
  Country: None (occurrence: None)
  Receive Date: 20080415
  Receipt Date: 20080415
  Transmission Date: 20081010
  Serious: Yes (Other)
  Sender: FDA-Public Use
  Company Number: None

PATIENT
  Sex: Male
  Weight: 77.1115 kg

DRUGS (1)
  1. AZOPT [Suspect]
     Indication: GLAUCOMA
     Dosage: ONE DROP PER EYE TWICE A DAY OTIC
     Dates: start: 20080327, end: 20080407

REACTIONS (2)
  - DISEASE RECURRENCE [None]
  - GOUT [None]
